FAERS Safety Report 19966609 (Version 2)
Quarter: 2021Q4

REPORT INFORMATION
  Report Type: Spontaneous
  Country: AU (occurrence: AU)
  Receive Date: 20211019
  Receipt Date: 20211125
  Transmission Date: 20220303
  Serious: Yes (Death)
  Sender: FDA-Public Use
  Company Number: AU-BEH-2021136833

PATIENT
  Sex: Male

DRUGS (7)
  1. HUMAN IMMUNOGLOBULIN G [Suspect]
     Active Substance: HUMAN IMMUNOGLOBULIN G
     Indication: Haemophagocytic lymphohistiocytosis
     Dosage: 2000 MILLIGRAM/KILOGRAM
     Route: 042
  2. CYCLOSPORINE [Suspect]
     Active Substance: CYCLOSPORINE
     Indication: Haemophagocytic lymphohistiocytosis
     Dosage: 200 MILLIGRAM, BID
     Route: 065
  3. ANAKINRA [Suspect]
     Active Substance: ANAKINRA
     Indication: Haemophagocytic lymphohistiocytosis
     Dosage: 100 MILLIGRAM
     Route: 065
  4. RITUXIMAB [Suspect]
     Active Substance: RITUXIMAB
     Indication: Haemophagocytic lymphohistiocytosis
     Dosage: 375 MILLIGRAM/SQ. METER
     Route: 065
  5. FLUCONAZOLE [Suspect]
     Active Substance: FLUCONAZOLE
     Indication: Product used for unknown indication
     Route: 065
  6. ETOPOSIDE [Suspect]
     Active Substance: ETOPOSIDE
     Indication: Haemophagocytic lymphohistiocytosis
     Dosage: 150 MILLIGRAM/SQ. METER
     Route: 065
  7. DEXAMETHASONE SODIUM PHOSPHATE [Suspect]
     Active Substance: DEXAMETHASONE SODIUM PHOSPHATE
     Indication: Haemophagocytic lymphohistiocytosis
     Dosage: 20 MILLIGRAM
     Route: 065

REACTIONS (7)
  - Pancytopenia [Fatal]
  - Haemodynamic instability [Fatal]
  - Haemophagocytic lymphohistiocytosis [Fatal]
  - Pancytopenia [Fatal]
  - Serum ferritin increased [Fatal]
  - No adverse event [Unknown]
  - Off label use [Unknown]
